FAERS Safety Report 7209878-X (Version None)
Quarter: 2011Q1

REPORT INFORMATION
  Report Type: 
  Country: None (occurrence: None)
  Receive Date: 20110105
  Receipt Date: 20101229
  Transmission Date: 20110831
  Serious: Yes (Other)
  Sender: FDA-Public Use
  Company Number: US-AMGEN-TCS440557

PATIENT

DRUGS (7)
  1. FISH OIL [Concomitant]
     Dosage: UNK UNK, QD
  2. VITAMIN D3 [Concomitant]
     Dosage: 3000 IU, UNK
  3. MULTI-VITAMINS [Concomitant]
     Dosage: 1 UNK, QD
  4. COLLAGEN [Concomitant]
     Dosage: UNK
  5. REMICADE [Concomitant]
     Dosage: 200 MG, Q2WK
  6. ENBREL [Suspect]
     Indication: PSORIATIC ARTHROPATHY
     Dosage: 50 MG, QWK
     Route: 058
     Dates: start: 20100923, end: 20101027
  7. CALCIUM [Concomitant]
     Dosage: 6 UNK, QD

REACTIONS (17)
  - OROPHARYNGEAL PAIN [None]
  - INJECTION SITE WARMTH [None]
  - INJECTION SITE ERYTHEMA [None]
  - VIRAL INFECTION [None]
  - LYMPHADENOPATHY [None]
  - COUGH [None]
  - INJECTION SITE SWELLING [None]
  - INJECTION SITE PRURITUS [None]
  - DYSPHAGIA [None]
  - CHEST PAIN [None]
  - CHEST DISCOMFORT [None]
  - DISTURBANCE IN ATTENTION [None]
  - RESPIRATORY TRACT CONGESTION [None]
  - DYSPNOEA [None]
  - INJECTION SITE HAEMATOMA [None]
  - SYNOVIAL DISORDER [None]
  - MALAISE [None]
